FAERS Safety Report 18987696 (Version 2)
Quarter: 2021Q1

REPORT INFORMATION
  Report Type: Spontaneous
  Country: US (occurrence: US)
  Receive Date: 20210309
  Receipt Date: 20210316
  Transmission Date: 20210420
  Serious: Yes (Other)
  Sender: FDA-Public Use
  Company Number: US-TAKEDA-2021TUS015165

PATIENT
  Sex: Female
  Weight: 95 kg

DRUGS (1)
  1. ALUNBRIG [Suspect]
     Active Substance: BRIGATINIB
     Indication: NON-SMALL CELL LUNG CANCER
     Dosage: UNK
     Route: 065
     Dates: start: 201803, end: 202009

REACTIONS (5)
  - Drug ineffective [Unknown]
  - Tumour marker abnormal [Unknown]
  - Metastases to soft tissue [Unknown]
  - Spinal cord oedema [Unknown]
  - Pain [Unknown]
